FAERS Safety Report 8563096-1 (Version None)
Quarter: 2012Q3

REPORT INFORMATION
  Report Type: 
  Country: None (occurrence: None)
  Receive Date: 20120802
  Receipt Date: 20120724
  Transmission Date: 20120928
  Serious: No
  Sender: FDA-Public Use
  Company Number: US-AMGEN-USASP2012046279

PATIENT
  Sex: Female

DRUGS (2)
  1. ENBREL [Suspect]
     Indication: PSORIATIC ARTHROPATHY
     Dosage: 50 MG, Q2WK
     Dates: start: 20090601
  2. METHOTREXATE [Concomitant]
     Dosage: UNK
     Dates: start: 19980101

REACTIONS (3)
  - INJECTION SITE ERYTHEMA [None]
  - PSORIASIS [None]
  - INJECTION SITE SWELLING [None]
